FAERS Safety Report 15785079 (Version 1)
Quarter: 2019Q1

REPORT INFORMATION
  Report Type: Spontaneous
  Country: US (occurrence: US)
  Receive Date: 20190103
  Receipt Date: 20190103
  Transmission Date: 20190417
  Serious: No
  Sender: FDA-Public Use
  Company Number: US-PFIZER INC-2018536209

PATIENT
  Age: 16 Year
  Sex: Male

DRUGS (2)
  1. GENOTROPIN [Suspect]
     Active Substance: SOMATROPIN
     Dosage: 2.5 MG, DAILY
     Dates: start: 20170121
  2. GENOTROPIN [Suspect]
     Active Substance: SOMATROPIN
     Dosage: 2.4 MG, DAILY

REACTIONS (10)
  - Product dose omission [Unknown]
  - Blood creatinine decreased [Unknown]
  - Vitamin D decreased [Unknown]
  - Glycosylated haemoglobin decreased [Unknown]
  - Blood bilirubin increased [Unknown]
  - Injection site pain [Recovered/Resolved]
  - Blood urea decreased [Unknown]
  - Product prescribing error [Unknown]
  - Carbon dioxide decreased [Unknown]
  - Aspartate aminotransferase increased [Unknown]
